FAERS Safety Report 22345923 (Version 1)
Quarter: 2023Q2

REPORT INFORMATION
  Report Type: Spontaneous
  Country: CA (occurrence: CA)
  Receive Date: 20230519
  Receipt Date: 20230519
  Transmission Date: 20230722
  Serious: Yes (Life-Threatening, Hospitalization, Other)
  Sender: FDA-Public Use
  Company Number: CA-FreseniusKabi-FK202306768

PATIENT
  Age: 18 Year
  Sex: Male

DRUGS (6)
  1. PROPOFOL [Suspect]
     Active Substance: PROPOFOL
     Indication: Product used for unknown indication
     Route: 065
  2. MIDAZOLAM [Suspect]
     Active Substance: MIDAZOLAM
     Indication: Product used for unknown indication
     Route: 030
  3. CLINDAMYCIN HYDROCHLORIDE [Suspect]
     Active Substance: CLINDAMYCIN HYDROCHLORIDE
     Indication: Product used for unknown indication
     Route: 065
  4. FORANE [Suspect]
     Active Substance: ISOFLURANE
     Indication: Induction of anaesthesia
  5. ROCURONIUM BROMIDE [Suspect]
     Active Substance: ROCURONIUM BROMIDE
     Indication: Product used for unknown indication
     Route: 065
  6. DEXAMETHASONE SODIUM PHOSPHATE [Suspect]
     Active Substance: DEXAMETHASONE SODIUM PHOSPHATE
     Indication: Product used for unknown indication
     Route: 065

REACTIONS (2)
  - Hyperthermia malignant [Recovered/Resolved]
  - Rash [Recovered/Resolved]
